FAERS Safety Report 12387603 (Version 1)
Quarter: 2016Q2

REPORT INFORMATION
  Report Type: Spontaneous
  Country: US (occurrence: US)
  Receive Date: 20160520
  Receipt Date: 20160520
  Transmission Date: 20160815
  Serious: No
  Sender: FDA-Public Use
  Company Number: US-ALVOGEN-2016-ALVOGEN-021562

PATIENT
  Age: 63 Year
  Sex: Female
  Weight: 63.64 kg

DRUGS (2)
  1. SERTRALINE [Concomitant]
     Active Substance: SERTRALINE HYDROCHLORIDE
     Indication: PRODUCT USED FOR UNKNOWN INDICATION
  2. EXEMESTANE. [Suspect]
     Active Substance: EXEMESTANE
     Indication: BREAST CANCER

REACTIONS (2)
  - Drug ineffective [Unknown]
  - Product substitution issue [Unknown]
